FAERS Safety Report 5154589-8 (Version None)
Quarter: 2006Q4

REPORT INFORMATION
  Report Type: 
  Country: None (occurrence: None)
  Receive Date: 20061114
  Receipt Date: 20061030
  Transmission Date: 20070319
  Serious: Yes (Hospitalization)
  Sender: FDA-Public Use
  Company Number: T200601263

PATIENT
  Age: 79 Year
  Sex: Female

DRUGS (1)
  1. OPTIRAY PBP (IOVERSOL)INJECTION, 300 [Suspect]
     Indication: COMPUTERISED TOMOGRAM
     Dosage: SINGLE, INTRAVENOUS
     Route: 042
     Dates: start: 20061010, end: 20061010

REACTIONS (4)
  - ABDOMINAL PAIN UPPER [None]
  - CHILLS [None]
  - FEELING HOT [None]
  - HEADACHE [None]
